FAERS Safety Report 11599159 (Version 1)
Quarter: 2015Q4

REPORT INFORMATION
  Report Type: Spontaneous
  Country: US (occurrence: US)
  Receive Date: 20151006
  Receipt Date: 20151006
  Transmission Date: 20160304
  Serious: Yes (Other)
  Sender: FDA-Public Use
  Company Number: US-MYLANLABS-2015M1033292

PATIENT

DRUGS (4)
  1. PREDNISONE. [Concomitant]
     Active Substance: PREDNISONE
     Indication: PRODUCT USED FOR UNKNOWN INDICATION
  2. DISULFIRAM. [Suspect]
     Active Substance: DISULFIRAM
     Indication: PNEUMONITIS
     Dosage: 1 G, UNK
     Route: 048
  3. DISULFIRAM. [Suspect]
     Active Substance: DISULFIRAM
     Dosage: 500MG; 6 HOURS AFTER INITIAL DOSE
     Route: 065
  4. DISULFIRAM. [Suspect]
     Active Substance: DISULFIRAM
     Dosage: 250MG FOR 5 DAYS
     Route: 065

REACTIONS (2)
  - Transaminases increased [Unknown]
  - Off label use [Unknown]
